FAERS Safety Report 5255884-4 (Version None)
Quarter: 2007Q1

REPORT INFORMATION
  Report Type: 
  Country: None (occurrence: None)
  Receive Date: 20070301
  Receipt Date: 20070222
  Transmission Date: 20070707
  Serious: Yes (Hospitalization, Other)
  Sender: FDA-Public Use
  Company Number: 226601

PATIENT
  Age: 64 Year
  Sex: Female

DRUGS (4)
  1. AVASTIN [Suspect]
     Indication: COLORECTAL CANCER
  2. FLUOROURACIL [Concomitant]
  3. LEUCOVORIN (LEUCOVORIN) [Concomitant]
  4. OXALIPLATIN [Concomitant]

REACTIONS (2)
  - HAEMOLYTIC ANAEMIA [None]
  - INTERSTITIAL LUNG DISEASE [None]
